FAERS Safety Report 4383799-2 (Version None)
Quarter: 2004Q2

REPORT INFORMATION
  Report Type: 
  Country: None (occurrence: None)
  Receive Date: 20040608
  Receipt Date: 20030918
  Transmission Date: 20050107
  Serious: Yes (Other)
  Sender: FDA-Public Use
  Company Number: 200313400BCC

PATIENT
  Age: 64 Year
  Sex: Male
  Weight: 94.3482 kg

DRUGS (1)
  1. ALEVE [Suspect]
     Dosage: 220 MG, PRN, ORAL
     Route: 048
     Dates: start: 20030906, end: 20030917

REACTIONS (1)
  - HAEMATOCHEZIA [None]
